FAERS Safety Report 21553028 (Version 7)
Quarter: 2023Q4

REPORT INFORMATION
  Report Type: Report from Study
  Country: CO (occurrence: CO)
  Receive Date: 20221104
  Receipt Date: 20231124
  Transmission Date: 20240110
  Serious: Yes (Other)
  Sender: FDA-Public Use
  Company Number: CO-002147023-NVSC2021CO114670

PATIENT
  Age: 54 Year
  Sex: Female

DRUGS (3)
  1. AFINITOR [Suspect]
     Active Substance: EVEROLIMUS
     Indication: Pancreatic neuroendocrine tumour
     Dosage: 10 MG, QD
     Route: 048
  2. AFINITOR [Suspect]
     Active Substance: EVEROLIMUS
     Indication: Neuroendocrine tumour of the lung
     Dosage: UNK
     Route: 048
  3. AFINITOR [Suspect]
     Active Substance: EVEROLIMUS
     Indication: Neuroendocrine tumour
     Dosage: 5 MG, QD
     Route: 048
     Dates: start: 20210504

REACTIONS (14)
  - Thrombosis [Unknown]
  - Haemorrhage [Unknown]
  - Pain [Unknown]
  - Eye inflammation [Unknown]
  - Dizziness [Unknown]
  - Fall [Unknown]
  - Illness [Unknown]
  - Speech disorder [Unknown]
  - Stomatitis [Not Recovered/Not Resolved]
  - Dry skin [Unknown]
  - Pruritus [Unknown]
  - Viral infection [Unknown]
  - General physical health deterioration [Unknown]
  - Pharyngitis [Unknown]

NARRATIVE: CASE EVENT DATE: 20231106
